FAERS Safety Report 12138893 (Version 1)
Quarter: 2016Q1

REPORT INFORMATION
  Report Type: Spontaneous
  Country: US (occurrence: US)
  Receive Date: 20160302
  Receipt Date: 20160302
  Transmission Date: 20160526
  Serious: Yes (Other)
  Sender: FDA-Public Use
  Company Number: US-APOTEX-2015AP014866

PATIENT
  Age: 5 Month
  Sex: Male

DRUGS (5)
  1. GEMCITABINE [Suspect]
     Active Substance: GEMCITABINE\GEMCITABINE HYDROCHLORIDE
     Indication: ANGIOSARCOMA
     Dosage: 900 MG/M2, UNK
     Route: 065
  2. DOCETAXEL INJECTION [Suspect]
     Active Substance: DOCETAXEL
     Indication: ANGIOSARCOMA
     Dosage: 75 MG/M2, EVERY 3 WEEKS
     Route: 065
  3. GEMCITABINE [Suspect]
     Active Substance: GEMCITABINE\GEMCITABINE HYDROCHLORIDE
     Dosage: 450 MG/M2 FOR CYCLE 9 AND SUBSEQUENT CYCLES
  4. BEVACIZUMAB [Suspect]
     Active Substance: BEVACIZUMAB
     Indication: ANGIOSARCOMA
     Dosage: 15 M/KG ON DAY 1- EVERY 3 WEEKS OF CYCLE
     Route: 065
  5. BEVACIZUMAB [Suspect]
     Active Substance: BEVACIZUMAB
     Dosage: DECREASED TO 5 MG/KG

REACTIONS (3)
  - Neuropathy peripheral [Unknown]
  - Pleural effusion [Unknown]
  - Lymphoedema [Unknown]
